FAERS Safety Report 19972764 (Version 1)
Quarter: 2021Q4

REPORT INFORMATION
  Report Type: Spontaneous
  Country: US (occurrence: US)
  Receive Date: 20211019
  Receipt Date: 20211019
  Transmission Date: 20220303
  Serious: Yes (Death)
  Sender: FDA-Public Use
  Company Number: None

PATIENT
  Age: 67 Year
  Sex: Male
  Weight: 123 kg

DRUGS (1)
  1. BARICITINIB [Suspect]
     Active Substance: BARICITINIB
     Indication: COVID-19
     Route: 048
     Dates: start: 20210825, end: 20210901

REACTIONS (11)
  - Abdominal pain [None]
  - Diverticular perforation [None]
  - Pneumoperitoneum [None]
  - Diverticulitis [None]
  - Mass [None]
  - Abdominal abscess [None]
  - Tachypnoea [None]
  - Hypoxia [None]
  - Cardiac arrest [None]
  - Pulseless electrical activity [None]
  - Death [None]

NARRATIVE: CASE EVENT DATE: 20210913
